FAERS Safety Report 9579392 (Version 2)
Quarter: 2013Q4

REPORT INFORMATION
  Report Type: Spontaneous
  Country: US (occurrence: US)
  Receive Date: 20131001
  Receipt Date: 20131001
  Transmission Date: 20140711
  Serious: No
  Sender: FDA-Public Use
  Company Number: US-AMGEN-USASP2012083960

PATIENT
  Age: 60 Year
  Sex: Female
  Weight: 81.63 kg

DRUGS (4)
  1. ENBREL [Suspect]
     Indication: RHEUMATOID ARTHRITIS
     Dosage: 50 MG, QWK
     Route: 058
     Dates: start: 20120923
  2. METHOTREXATE [Concomitant]
     Dosage: 2.5 MG, UNK
  3. CALCIUM + VITAMIN D                /01483701/ [Concomitant]
     Dosage: UNK
  4. PREDNISONE [Concomitant]
     Dosage: 10 MG, UNK

REACTIONS (2)
  - Pneumonia [Recovered/Resolved]
  - Injection site pain [Unknown]
